FAERS Safety Report 8548302-1 (Version None)
Quarter: 2012Q3

REPORT INFORMATION
  Report Type: 
  Country: None (occurrence: None)
  Receive Date: 20120719
  Receipt Date: 20120719
  Transmission Date: 20120928
  Serious: Yes (Other)
  Sender: FDA-Public Use
  Company Number: None

PATIENT
  Sex: Female
  Weight: 48.172 kg

DRUGS (3)
  1. QUETIAPINE FUMARATE [Suspect]
     Indication: ATTENTION DEFICIT/HYPERACTIVITY DISORDER
     Dosage: 25 MG PO QHS
     Route: 048
     Dates: start: 20110126
  2. KAPVOY [Concomitant]
  3. FOCALIN XR [Concomitant]

REACTIONS (3)
  - PRODUCT SUBSTITUTION ISSUE [None]
  - INITIAL INSOMNIA [None]
  - MIDDLE INSOMNIA [None]
